FAERS Safety Report 6193703-2 (Version None)
Quarter: 2009Q2

REPORT INFORMATION
  Report Type: 
  Country: None (occurrence: None)
  Receive Date: 20090518
  Receipt Date: 20090511
  Transmission Date: 20091009
  Serious: Yes (Hospitalization)
  Sender: FDA-Public Use
  Company Number: US-ELI_LILLY_AND_COMPANY-US200905001908

PATIENT
  Sex: Male
  Weight: 131.52 kg

DRUGS (17)
  1. BYETTA [Suspect]
     Indication: TYPE 2 DIABETES MELLITUS
     Dosage: 5 UG, 2/D
     Route: 058
     Dates: start: 20080728, end: 20080801
  2. BYETTA [Suspect]
     Dosage: 10 UG, 2/D
     Route: 058
     Dates: start: 20080801, end: 20090415
  3. METFORMIN HCL [Concomitant]
     Dosage: 500 MG, 2/D
     Dates: start: 19990101, end: 20090415
  4. ALLOPURINOL [Concomitant]
     Indication: NEPHROLITHIASIS
     Dosage: 300 MG, DAILY (1/D)
  5. AMLODIPINE BESYLATE [Concomitant]
     Indication: HYPERTENSION
     Dosage: 10 MG, DAILY (1/D)
  6. TERAZOSIN HYDROCHLORIDE [Concomitant]
     Indication: HYPERTENSION
     Dosage: 10 MG, EACH EVENING
  7. VALSARTAN [Concomitant]
     Indication: HYPERTENSION
     Dosage: 320 MG, DAILY (1/D)
  8. RANITIDINE HYDROCHLORIDE [Concomitant]
     Indication: GASTROOESOPHAGEAL REFLUX DISEASE
     Dosage: 150 MG, 2/D
  9. SIMVASTATIN [Concomitant]
     Indication: BLOOD CHOLESTEROL
     Dosage: 10 MG, EACH EVENING
     Dates: start: 20070101
  10. FUROSEMIDE [Concomitant]
     Indication: BLOOD PRESSURE
     Dosage: 40 MG, DAILY (1/D)
     Dates: start: 19990101
  11. LORATADINE [Concomitant]
     Indication: HYPERSENSITIVITY
     Dosage: 10 MG, DAILY (1/D)
     Dates: start: 20070101
  12. ASPIRIN [Concomitant]
     Indication: ANTICOAGULANT THERAPY
     Dosage: 81 MG, DAILY (1/D)
     Dates: start: 19990101
  13. SPIRIVA [Concomitant]
     Indication: ASTHMA
     Dosage: UNK, DAILY (1/D)
     Dates: start: 19990101
  14. FORADIL [Concomitant]
     Indication: ASTHMA
     Dosage: 12 UG, 2/D
     Dates: start: 19940101
  15. ASMANEX TWISTHALER [Concomitant]
     Indication: ASTHMA
     Dosage: 220 UG, DAILY (1/D)
     Dates: start: 20060101
  16. LEVOTHYROX [Concomitant]
     Dosage: 50 UG, DAILY (1/D)
     Dates: start: 20080801
  17. CYANOCOBALAMIN [Concomitant]
     Dosage: 1000 UG, WEEKLY (1/W)
     Route: 051
     Dates: start: 20080701

REACTIONS (4)
  - ANOREXIA [None]
  - BACK PAIN [None]
  - NAUSEA [None]
  - NEPHROLITHIASIS [None]
